FAERS Safety Report 6019158-6 (Version None)
Quarter: 2008Q4

REPORT INFORMATION
  Report Type: 
  Country: None (occurrence: None)
  Receive Date: 20081224
  Receipt Date: 20081208
  Transmission Date: 20090506
  Serious: Yes (Hospitalization)
  Sender: FDA-Public Use
  Company Number: SE-ASTRAZENECA-2008SE05808

PATIENT
  Age: 926 Month
  Sex: Female

DRUGS (18)
  1. ATENOLOL [Suspect]
     Dates: end: 20080916
  2. TROMBYL [Suspect]
  3. PLAVIX [Suspect]
     Dates: end: 20080901
  4. ESTRIOL [Concomitant]
  5. SYMBICORT [Concomitant]
  6. SPIRIVA [Concomitant]
  7. SIMVASTATIN [Concomitant]
  8. ZOPICLONE [Concomitant]
  9. CITALOPRAM [Concomitant]
  10. BEHEPAN [Concomitant]
  11. BRICANYL [Concomitant]
  12. MOLLIPECT [Concomitant]
  13. BURINEX [Concomitant]
  14. ETALPHA [Concomitant]
  15. PANACOD [Concomitant]
  16. LACTULOSE [Concomitant]
  17. SPIRONOLACTONE [Concomitant]
  18. LANTUS [Concomitant]

REACTIONS (2)
  - BRADYCARDIA [None]
  - POSTMENOPAUSAL HAEMORRHAGE [None]
